FAERS Safety Report 13246699 (Version 1)
Quarter: 2017Q1

REPORT INFORMATION
  Report Type: Other
  Country: None (occurrence: GB)
  Receive Date: 20170217
  Receipt Date: 20170217
  Transmission Date: 20170428
  Serious: Yes (Hospitalization, Other)
  Sender: FDA-Public Use
  Company Number: GB-WARNER CHILCOTT, LLC-1063273

PATIENT
  Age: 80 Year
  Sex: Male

DRUGS (1)
  1. ASACOL [Suspect]
     Active Substance: MESALAMINE
     Indication: CROHN^S DISEASE
     Route: 065

REACTIONS (13)
  - Vomiting [Recovering/Resolving]
  - Middle ear effusion [Recovering/Resolving]
  - Osteomyelitis [Recovering/Resolving]
  - Circulatory collapse [Recovering/Resolving]
  - Generalised tonic-clonic seizure [Recovering/Resolving]
  - Headache [Recovering/Resolving]
  - Weight decreased [Recovering/Resolving]
  - Immunodeficiency [Recovering/Resolving]
  - Bone erosion [Recovering/Resolving]
  - Deafness bilateral [Recovering/Resolving]
  - Soft tissue mass [Recovering/Resolving]
  - Pharyngeal abscess [Recovering/Resolving]
  - Nausea [Recovering/Resolving]
